FAERS Safety Report 8238596-4 (Version None)
Quarter: 2012Q1

REPORT INFORMATION
  Report Type: 
  Country: None (occurrence: None)
  Receive Date: 20120327
  Receipt Date: 20120326
  Transmission Date: 20120608
  Serious: Yes (Other)
  Sender: FDA-Public Use
  Company Number: US-PFIZER INC-2012077196

PATIENT
  Sex: Female
  Weight: 52.608 kg

DRUGS (2)
  1. GEODON [Suspect]
     Indication: BIPOLAR DISORDER
     Dosage: 40 MG, DAILY AT NIGHT
     Dates: start: 20120201, end: 20120201
  2. GEODON [Suspect]
     Indication: SLEEP DISORDER

REACTIONS (5)
  - MALAISE [None]
  - DISTURBANCE IN ATTENTION [None]
  - FEELING DRUNK [None]
  - HYPERSOMNIA [None]
  - ABDOMINAL DISCOMFORT [None]
